FAERS Safety Report 7852181-5 (Version None)
Quarter: 2011Q4

REPORT INFORMATION
  Report Type: 
  Country: None (occurrence: None)
  Receive Date: 20111026
  Receipt Date: 20111021
  Transmission Date: 20120403
  Serious: Yes (Disabling, Other)
  Sender: FDA-Public Use
  Company Number: US-PFIZER INC-2011255672

PATIENT
  Sex: Female
  Weight: 83.447 kg

DRUGS (9)
  1. LYRICA [Suspect]
     Indication: PAIN
     Dosage: 75 MG, DAILY
     Dates: start: 20060101
  2. VALIUM [Concomitant]
     Indication: MUSCLE SPASMS
     Dosage: 5 MG ONE IN THE MORNING AND TWO AT NIGHT
  3. OXYCONTIN [Concomitant]
     Dosage: 20 MG, 2X/DAY
  4. LYRICA [Suspect]
     Dosage: 150 MG, DAILY
     Dates: start: 20110915, end: 20110101
  5. LYRICA [Suspect]
     Dosage: 300 MG, DAILY
     Dates: start: 20110101
  6. BENTYL [Concomitant]
     Indication: GASTROINTESTINAL PAIN
     Dosage: 20 MG, 4X/DAY
  7. LYRICA [Suspect]
     Dosage: 150 MG, DAILY
     Dates: start: 20110701, end: 20110801
  8. NEURONTIN [Suspect]
     Indication: PAIN
     Dosage: UNK
     Dates: start: 20110815, end: 20110101
  9. PERCOCET [Concomitant]
     Dosage: ONE TABLET OF UNKNOWN DOSE EVERY FOUR HOURS AS NEEDED

REACTIONS (11)
  - ACTIVITIES OF DAILY LIVING IMPAIRED [None]
  - SWELLING FACE [None]
  - DRUG INEFFECTIVE [None]
  - WEIGHT INCREASED [None]
  - SOMNOLENCE [None]
  - FEELING ABNORMAL [None]
  - DIZZINESS [None]
  - VERTIGO [None]
  - EYE DISORDER [None]
  - FATIGUE [None]
  - MUSCULOSKELETAL STIFFNESS [None]
